FAERS Safety Report 6491934-5 (Version None)
Quarter: 2009Q4

REPORT INFORMATION
  Report Type: 
  Country: None (occurrence: None)
  Receive Date: 20091208
  Receipt Date: 20091208
  Transmission Date: 20100525
  Serious: Yes (Hospitalization)
  Sender: FDA-Public Use
  Company Number: A-CH2009-30903

PATIENT
  Age: 54 Year
  Sex: Female
  Weight: 60 kg

DRUGS (3)
  1. TRACLEER [Suspect]
     Indication: PULMONARY ARTERIAL HYPERTENSION
     Dosage: 52.5 MG, BID, ORAL
     Route: 048
     Dates: start: 20080519
  2. LASIX [Concomitant]
  3. PREDNISOLONE [Concomitant]

REACTIONS (4)
  - BRONCHOPULMONARY ASPERGILLOSIS [None]
  - FALL [None]
  - HIP FRACTURE [None]
  - PNEUMONIA [None]
